FAERS Safety Report 8923791 (Version 1)
Quarter: 2012Q4

REPORT INFORMATION
  Report Type: 
  Country: ES (occurrence: ES)
  Receive Date: 20121126
  Receipt Date: 20121126
  Transmission Date: 20130627
  Serious: Yes (Other)
  Sender: FDA-Public Use
  Company Number: ES-JNJFOC-20121111957

PATIENT
  Age: 23 Year
  Sex: Female

DRUGS (7)
  1. PALEXIA RETARD [Suspect]
     Indication: PAIN
     Route: 048
     Dates: start: 20121029, end: 20121029
  2. IBUPROFEN [Concomitant]
     Indication: PAIN
     Route: 065
  3. PARACETAMOL [Concomitant]
     Indication: PAIN
     Route: 065
  4. LYRICA [Concomitant]
     Indication: PAIN
     Route: 065
  5. LIDOCAINE [Concomitant]
     Indication: PAIN
     Route: 061
  6. VERSATIS [Concomitant]
     Indication: PAIN
     Route: 061
  7. CAPSAICIN [Concomitant]
     Indication: PAIN
     Route: 065

REACTIONS (5)
  - Musculoskeletal stiffness [Recovered/Resolved]
  - Erythema [Recovered/Resolved]
  - Dry mouth [Recovered/Resolved]
  - Dizziness [Recovered/Resolved]
  - Malaise [Recovered/Resolved]
